FAERS Safety Report 15013047 (Version 2)
Quarter: 2018Q2

REPORT INFORMATION
  Report Type: Report from Study
  Country: BR (occurrence: BR)
  Receive Date: 20180614
  Receipt Date: 20180626
  Transmission Date: 20180711
  Serious: Yes (Other)
  Sender: FDA-Public Use
  Company Number: PHHY2016BR030431

PATIENT
  Sex: Female
  Weight: 71 kg

DRUGS (2)
  1. SANDOSTATIN LAR DEPOT [Suspect]
     Active Substance: OCTREOTIDE ACETATE
     Indication: ACROMEGALY
     Dosage: 20 MG, QMO
     Route: 030
  2. SANDOSTATIN LAR DEPOT [Suspect]
     Active Substance: OCTREOTIDE ACETATE
     Dosage: 30 MG, QMO
     Route: 030
     Dates: start: 2010

REACTIONS (15)
  - Toothache [Unknown]
  - Spinal disorder [Recovering/Resolving]
  - Pain [Unknown]
  - Arthralgia [Unknown]
  - Emotional disorder [Unknown]
  - Mood swings [Unknown]
  - Weight decreased [Unknown]
  - Insulin-like growth factor increased [Unknown]
  - Feeling abnormal [Unknown]
  - Speech disorder [Not Recovered/Not Resolved]
  - Blood growth hormone increased [Unknown]
  - Hormone level abnormal [Unknown]
  - Trigeminal neuralgia [Unknown]
  - Urinary tract infection [Unknown]
  - Blood glucose abnormal [Unknown]
